FAERS Safety Report 11743996 (Version 1)
Quarter: 2015Q4

REPORT INFORMATION
  Report Type: Spontaneous
  Country: US (occurrence: US)
  Receive Date: 20151116
  Receipt Date: 20151116
  Transmission Date: 20160304
  Serious: No
  Sender: FDA-Public Use
  Company Number: US-BAYER-2015-463911

PATIENT
  Age: 86 Year
  Sex: Female
  Weight: 79.36 kg

DRUGS (1)
  1. MIRALAX [Suspect]
     Active Substance: POLYETHYLENE GLYCOL 3350
     Dosage: 5 DF, QD
     Route: 048
     Dates: start: 201510, end: 20151102

REACTIONS (5)
  - Off label use [None]
  - Product use issue [None]
  - Product use issue [None]
  - Therapeutic response unexpected [None]
  - Diarrhoea [Recovered/Resolved]

NARRATIVE: CASE EVENT DATE: 201510
